FAERS Safety Report 6332200-8 (Version None)
Quarter: 2009Q3

REPORT INFORMATION
  Report Type: 
  Country: None (occurrence: None)
  Receive Date: 20090828
  Receipt Date: 20090817
  Transmission Date: 20100115
  Serious: Yes (Other)
  Sender: FDA-Public Use
  Company Number: GB-PFIZER INC-2009255365

PATIENT
  Age: 83 Year

DRUGS (12)
  1. LINEZOLID [Suspect]
     Indication: STAPHYLOCOCCAL INFECTION
     Dosage: 600 MG, 2X/DAY
     Route: 048
     Dates: start: 20090708, end: 20090722
  2. ASCORBIC ACID [Concomitant]
     Dosage: 500 MG, UNK
  3. BENDROFLUMETHIAZIDE [Concomitant]
     Dosage: 2.5 MG, UNK
  4. CLOPIDOGREL [Concomitant]
     Dosage: 75 MG, UNK
  5. CO-CODAMOL [Concomitant]
  6. CYANOCOBALAMIN [Concomitant]
  7. ESOMEPRAZOLE [Concomitant]
     Dosage: 40 MG, UNK
  8. FERROUS FUMARATE [Concomitant]
     Dosage: 305 MG, UNK
  9. FOLIC ACID [Concomitant]
     Dosage: 5 MG, UNK
  10. GLICLAZIDE [Concomitant]
     Dosage: 80 MG, UNK
  11. ROSUVASTATIN [Concomitant]
     Dosage: 10 MG, UNK
  12. VALSARTAN [Concomitant]
     Dosage: 80 MG, UNK

REACTIONS (3)
  - DYSPNOEA [None]
  - HAEMOGLOBIN DECREASED [None]
  - PLATELET COUNT DECREASED [None]
